FAERS Safety Report 10725155 (Version 3)
Quarter: 2015Q3

REPORT INFORMATION
  Report Type: Report from Study
  Country: US (occurrence: US)
  Receive Date: 20150120
  Receipt Date: 20150710
  Transmission Date: 20151125
  Serious: Yes (Hospitalization, Other)
  Sender: FDA-Public Use
  Company Number: US-GILEAD-2015-0132087

PATIENT
  Age: 66 Year
  Sex: Female
  Weight: 70.7 kg

DRUGS (20)
  1. RITUXIMAB [Suspect]
     Active Substance: RITUXIMAB
     Indication: CHRONIC LYMPHOCYTIC LEUKAEMIA
     Dosage: 680 MG, Q1WK
     Route: 042
     Dates: start: 20150107, end: 20150107
  2. RITUXIMAB [Suspect]
     Active Substance: RITUXIMAB
     Dosage: 671 MG, Q1WK
     Route: 042
     Dates: start: 20150217, end: 20150217
  3. HYDROCHLOROTHIAZIDE. [Concomitant]
     Active Substance: HYDROCHLOROTHIAZIDE
     Indication: HYPERTENSION
     Route: 048
     Dates: start: 20141112
  4. SODIUM POLYSTYRENE SULFONATE. [Concomitant]
     Active Substance: SODIUM POLYSTYRENE SULFONATE
     Indication: HYPERKALAEMIA
     Route: 048
     Dates: start: 20150108, end: 20150108
  5. RITUXIMAB [Suspect]
     Active Substance: RITUXIMAB
     Indication: CHROMOSOMAL DELETION
     Dosage: 671 MG, Q1WK
     Route: 042
     Dates: start: 20150113, end: 20150113
  6. FUROSEMIDE. [Concomitant]
     Active Substance: FUROSEMIDE
     Indication: HYPERKALAEMIA
     Route: 040
     Dates: start: 20150108, end: 20150108
  7. ALLOPURINOL. [Concomitant]
     Active Substance: ALLOPURINOL
     Route: 048
     Dates: start: 20141202, end: 20150501
  8. GLUCOSAMINE CHONDROITIN            /01430901/ [Concomitant]
     Route: 048
     Dates: start: 20130618, end: 20150217
  9. RITUXIMAB [Suspect]
     Active Substance: RITUXIMAB
     Dosage: 671 MG, Q1WK
     Route: 042
     Dates: start: 20150203, end: 20150203
  10. IDELALISIB [Suspect]
     Active Substance: IDELALISIB
     Indication: CHROMOSOMAL DELETION
     Dosage: 150 MG, BID
     Route: 048
     Dates: start: 20150110
  11. RITUXIMAB [Suspect]
     Active Substance: RITUXIMAB
     Dosage: 671 MG, Q1WK
     Route: 042
     Dates: start: 20150128, end: 20150128
  12. ACETAMINOPHEN. [Concomitant]
     Active Substance: ACETAMINOPHEN
     Route: 048
     Dates: start: 20150107, end: 20150227
  13. WARFARIN SODIUM. [Concomitant]
     Active Substance: WARFARIN SODIUM
     Indication: PULMONARY EMBOLISM
     Route: 048
     Dates: start: 20140529
  14. HYDROCORTISONE SODIUM SUCCINATE [Concomitant]
     Active Substance: HYDROCORTISONE SODIUM SUCCINATE
     Route: 042
     Dates: start: 20150107, end: 20150227
  15. RITUXIMAB [Suspect]
     Active Substance: RITUXIMAB
     Dosage: 671 MG, Q1WK
     Route: 042
     Dates: start: 20150120, end: 20150120
  16. RITUXIMAB [Suspect]
     Active Substance: RITUXIMAB
     Dosage: 671 MG, Q1WK
     Route: 042
     Dates: start: 20150210, end: 20150210
  17. IDELALISIB [Suspect]
     Active Substance: IDELALISIB
     Indication: CHRONIC LYMPHOCYTIC LEUKAEMIA
     Dosage: 150 MG, BID
     Route: 048
     Dates: start: 20150107, end: 20150108
  18. RITUXIMAB [Suspect]
     Active Substance: RITUXIMAB
     Dosage: 671 MG, Q1WK
     Route: 042
     Dates: start: 20150227, end: 20150227
  19. ZOLPIDEM TARTRATE. [Concomitant]
     Active Substance: ZOLPIDEM TARTRATE
     Indication: INSOMNIA
     Route: 048
     Dates: start: 20131003
  20. DIPHENHYDRAMINE. [Concomitant]
     Active Substance: DIPHENHYDRAMINE
     Route: 042
     Dates: start: 20150107, end: 20150227

REACTIONS (1)
  - Tumour lysis syndrome [Recovered/Resolved]

NARRATIVE: CASE EVENT DATE: 20150108
